FAERS Safety Report 11122704 (Version 1)
Quarter: 2015Q2

REPORT INFORMATION
  Report Type: Spontaneous
  Country: US (occurrence: US)
  Receive Date: 20150519
  Receipt Date: 20150519
  Transmission Date: 20150821
  Serious: No
  Sender: FDA-Public Use
  Company Number: US-ABBVIE-14P-163-1197273-00

PATIENT
  Age: 30 Year
  Sex: Female

DRUGS (4)
  1. PROMETRIUM [Suspect]
     Active Substance: PROGESTERONE
     Indication: LUTEAL PHASE DEFICIENCY
     Route: 048
     Dates: start: 20140112, end: 20140118
  2. LOVENOX [Concomitant]
     Active Substance: ENOXAPARIN SODIUM
     Indication: COAGULOPATHY
     Dosage: DURING PREGNANCY
  3. PRENATAL VITAMINS [Concomitant]
     Active Substance: VITAMINS
     Indication: PREGNANCY
  4. PROMETRIUM [Suspect]
     Active Substance: PROGESTERONE
     Indication: COMPLICATION OF PREGNANCY
     Route: 067
     Dates: start: 20140119

REACTIONS (3)
  - Dizziness [Recovered/Resolved]
  - Nasal congestion [Recovering/Resolving]
  - Sinus headache [Recovering/Resolving]

NARRATIVE: CASE EVENT DATE: 20140112
